FAERS Safety Report 11290355 (Version 1)
Quarter: 2015Q3

REPORT INFORMATION
  Report Type: Spontaneous
  Country: US (occurrence: US)
  Receive Date: 20150722
  Receipt Date: 20150722
  Transmission Date: 20151125
  Serious: Yes (Other)
  Sender: FDA-Public Use
  Company Number: US-ROCHE-1583755

PATIENT
  Sex: Female

DRUGS (2)
  1. XELODA [Suspect]
     Active Substance: CAPECITABINE
     Indication: NEOPLASM MALIGNANT
     Dosage: 500 MG 2 TABS BID X 14 DAYS OFF 7 DAYS
     Route: 048
     Dates: start: 201505
  2. XELODA [Suspect]
     Active Substance: CAPECITABINE
     Route: 048
     Dates: start: 20150508

REACTIONS (5)
  - Skin fissures [Unknown]
  - Peripheral swelling [Recovering/Resolving]
  - Diarrhoea [Unknown]
  - Constipation [Unknown]
  - Blood count abnormal [Unknown]
